FAERS Safety Report 6819337-1 (Version None)
Quarter: 2010Q3

REPORT INFORMATION
  Report Type: 
  Country: None (occurrence: None)
  Receive Date: 20100707
  Receipt Date: 20100630
  Transmission Date: 20110219
  Serious: Yes (Hospitalization, Other)
  Sender: FDA-Public Use
  Company Number: US-BAYER-201018861NA

PATIENT
  Age: 78 Year
  Sex: Male

DRUGS (2)
  1. NEXAVAR [Suspect]
     Indication: LUNG NEOPLASM MALIGNANT
     Dosage: TOTAL DAILY DOSE: 800 MG  UNIT DOSE: 200 MG
     Route: 048
     Dates: start: 20100316, end: 20100501
  2. PAIN PATCH [Concomitant]

REACTIONS (19)
  - ANORECTAL DISCOMFORT [None]
  - BALANCE DISORDER [None]
  - DECREASED APPETITE [None]
  - DYSPNOEA [None]
  - ERYTHEMA [None]
  - EYE DISORDER [None]
  - GAIT DISTURBANCE [None]
  - MALAISE [None]
  - OEDEMA PERIPHERAL [None]
  - PNEUMONIA [None]
  - PRODUCTIVE COUGH [None]
  - PYREXIA [None]
  - THINKING ABNORMAL [None]
  - THROAT TIGHTNESS [None]
  - TREMOR [None]
  - TUBERCULOSIS [None]
  - UPPER EXTREMITY MASS [None]
  - VOMITING [None]
  - WEIGHT DECREASED [None]
